FAERS Safety Report 7121071-8 (Version None)
Quarter: 2010Q4

REPORT INFORMATION
  Report Type: 
  Country: None (occurrence: None)
  Receive Date: 20101122
  Receipt Date: 20101122
  Transmission Date: 20110411
  Serious: Yes (Other)
  Sender: FDA-Public Use
  Company Number: None

PATIENT
  Sex: Female
  Weight: 40.8237 kg

DRUGS (2)
  1. SINGULAIR [Suspect]
     Indication: ASTHMA
     Dosage: 5 MG ONCE A DAY PO
     Route: 048
     Dates: start: 20020120, end: 20101117
  2. SINGULAIR [Suspect]
     Indication: HYPERSENSITIVITY
     Dosage: 5 MG ONCE A DAY PO
     Route: 048
     Dates: start: 20020120, end: 20101117

REACTIONS (3)
  - ABDOMINAL PAIN UPPER [None]
  - NIGHTMARE [None]
  - PARANOIA [None]
